FAERS Safety Report 24937731 (Version 3)
Quarter: 2025Q1

REPORT INFORMATION
  Report Type: Report from Study
  Country: CA (occurrence: CA)
  Receive Date: 20250206
  Receipt Date: 20250212
  Transmission Date: 20250409
  Serious: No
  Sender: ROCHE
  Company Number: CA-ROCHE-10000199607

PATIENT
  Age: 46 Year
  Sex: Male

DRUGS (1)
  1. OCREVUS [Suspect]
     Active Substance: OCRELIZUMAB
     Indication: Primary progressive multiple sclerosis
     Dosage: MORE DOSAGE INFORMATION IS 300 MG AT DAY 0 AND 14, THEN 600 MG EVERY 6 MONTHS
     Route: 042
     Dates: start: 20210511

REACTIONS (4)
  - Illness [Not Recovered/Not Resolved]
  - Muscular weakness [Not Recovered/Not Resolved]
  - COVID-19 [Unknown]
  - Multiple sclerosis relapse [Unknown]

NARRATIVE: CASE EVENT DATE: 20230101
